FAERS Safety Report 17030803 (Version 1)
Quarter: 2019Q4

REPORT INFORMATION
  Report Type: Spontaneous
  Country: CN (occurrence: CN)
  Receive Date: 20191114
  Receipt Date: 20191114
  Transmission Date: 20200122
  Serious: Yes (Hospitalization, Other)
  Sender: FDA-Public Use
  Company Number: CN-PFIZER INC-2019487318

PATIENT
  Age: 54 Year
  Sex: Female
  Weight: 60 kg

DRUGS (2)
  1. CYCLOPHOSPHAMIDE. [Concomitant]
     Active Substance: CYCLOPHOSPHAMIDE
     Indication: BREAST CANCER
     Dosage: 800 MG, 1X/DAY
     Route: 041
     Dates: start: 20191009, end: 20191009
  2. PHARMORUBICIN [Suspect]
     Active Substance: EPIRUBICIN
     Indication: BREAST CANCER
     Dosage: 140 MG, 1X/DAY
     Route: 041
     Dates: start: 20191009, end: 20191009

REACTIONS (5)
  - Pyrexia [Recovering/Resolving]
  - Respiratory failure [Recovering/Resolving]
  - Bone marrow failure [Recovering/Resolving]
  - Pleural effusion [Recovering/Resolving]
  - Skin exfoliation [Recovering/Resolving]

NARRATIVE: CASE EVENT DATE: 20191009
